FAERS Safety Report 10405341 (Version 1)
Quarter: 2014Q3

REPORT INFORMATION
  Report Type: Spontaneous
  Country: US (occurrence: None)
  Receive Date: 20140821
  Receipt Date: 20140821
  Transmission Date: 20150326
  Serious: Yes (Hospitalization)
  Sender: FDA-Public Use
  Company Number: None

PATIENT
  Age: 66 Year
  Sex: Male
  Weight: 134.34 kg

DRUGS (3)
  1. LISINOPRIL. [Suspect]
     Active Substance: LISINOPRIL
     Indication: HYPERTENSION
     Route: 048
     Dates: start: 20010306, end: 20140701
  2. LISINOPRIL. [Suspect]
     Active Substance: LISINOPRIL
     Indication: BIPOLAR I DISORDER
     Route: 048
     Dates: start: 20010306, end: 20140701
  3. LISINOPRIL. [Suspect]
     Active Substance: LISINOPRIL
     Indication: DIABETES MELLITUS
     Route: 048
     Dates: start: 20010306, end: 20140701

REACTIONS (1)
  - Angioedema [None]

NARRATIVE: CASE EVENT DATE: 20140701
